FAERS Safety Report 8949453 (Version 2)
Quarter: 2013Q1

REPORT INFORMATION
  Report Type: Spontaneous
  Country: US (occurrence: US)
  Receive Date: 20121206
  Receipt Date: 20130107
  Transmission Date: 20140127
  Serious: Yes (Death)
  Sender: FDA-Public Use
  Company Number: US-PFIZER INC-2012303163

PATIENT
  Age: 69 Year
  Sex: Male

DRUGS (1)
  1. REVATIO [Suspect]
     Indication: PULMONARY HYPERTENSION
     Dosage: 40 MG, 3X/DAY
     Dates: start: 20110331

REACTIONS (4)
  - Pulmonary fibrosis [Fatal]
  - Disease progression [Fatal]
  - Pulmonary hypertension [Fatal]
  - Off label use [Unknown]
